FAERS Safety Report 23291554 (Version 1)
Quarter: 2023Q4

REPORT INFORMATION
  Report Type: Spontaneous
  Country: DE (occurrence: DE)
  Receive Date: 20231213
  Receipt Date: 20231213
  Transmission Date: 20240109
  Serious: Yes (Other)
  Sender: FDA-Public Use
  Company Number: None

PATIENT
  Age: 44 Year
  Weight: 82 kg

DRUGS (1)
  1. TRAMADOL [Suspect]
     Active Substance: TRAMADOL\TRAMADOL HYDROCHLORIDE
     Indication: Neuralgia
     Dosage: 16 H?BE/ X 5 DOSES
     Route: 048
     Dates: start: 20230803, end: 20231029

REACTIONS (7)
  - Cardiac arrest [Not Recovered/Not Resolved]
  - Cyanosis [Unknown]
  - Seizure [Recovered/Resolved with Sequelae]
  - Overdose [Unknown]
  - Product communication issue [Unknown]
  - Pulse absent [Unknown]
  - Loss of consciousness [Recovered/Resolved with Sequelae]

NARRATIVE: CASE EVENT DATE: 20230803
